FAERS Safety Report 23202883 (Version 1)
Quarter: 2023Q4

REPORT INFORMATION
  Report Type: Spontaneous
  Country: US (occurrence: US)
  Receive Date: 20231120
  Receipt Date: 20231120
  Transmission Date: 20240109
  Serious: Yes (Other)
  Sender: FDA-Public Use
  Company Number: US-SA-SAC20231116001248

PATIENT
  Age: 9 Month

DRUGS (2)
  1. ALPROLIX [Suspect]
     Active Substance: EFTRENONACOG ALFA
     Dosage: UNK
  2. ALPROLIX [Suspect]
     Active Substance: EFTRENONACOG ALFA
     Dosage: UNK

REACTIONS (3)
  - Anti factor IX antibody increased [Unknown]
  - Drug hypersensitivity [Unknown]
  - Urticaria [Unknown]
